FAERS Safety Report 4463035-9 (Version None)
Quarter: 2004Q3

REPORT INFORMATION
  Report Type: 
  Country: None (occurrence: None)
  Receive Date: 20040928
  Receipt Date: 20040916
  Transmission Date: 20050211
  Serious: Yes (Hospitalization)
  Sender: FDA-Public Use
  Company Number: HQWYE120320SEP04

PATIENT
  Age: 91 Year
  Sex: Male

DRUGS (5)
  1. CORDARONE [Suspect]
     Dosage: 200 MG 1X PER 1 DAY; ORAL
     Route: 048
     Dates: end: 20040420
  2. RANITIDINE HYDROCHLORIDE [Concomitant]
  3. DIGOXIN [Concomitant]
  4. LASIX [Concomitant]
  5. MODOPAR (BENSERAZIDE HYDROCHLORIDE/LEVODOPA) [Concomitant]

REACTIONS (3)
  - GOITRE [None]
  - HYPERTHYROIDISM [None]
  - HYPONATRAEMIA [None]
